FAERS Safety Report 19003432 (Version 1)
Quarter: 2021Q1

REPORT INFORMATION
  Report Type: Spontaneous
  Country: DE (occurrence: DE)
  Receive Date: 20210312
  Receipt Date: 20210312
  Transmission Date: 20210420
  Serious: Yes (Death, Hospitalization)
  Sender: FDA-Public Use
  Company Number: DE-TEVA-2021-DE-1888150

PATIENT
  Age: 78 Year
  Sex: Male

DRUGS (2)
  1. BISOPROLOL [Suspect]
     Active Substance: BISOPROLOL
     Dosage: 5 MG, 1?0?0.5?0
     Route: 065
  2. TARGIN10MG/5MG [Concomitant]
     Dosage: 1 DOSAGE FORMS DAILY; 5|10 MG, 0?0?1?0

REACTIONS (7)
  - Fatigue [Unknown]
  - Thirst [Unknown]
  - Sepsis [Unknown]
  - Hypotension [Unknown]
  - Dehydration [Unknown]
  - General physical health deterioration [Unknown]
  - Condition aggravated [Unknown]
